FAERS Safety Report 11057528 (Version 2)
Quarter: 2015Q2

REPORT INFORMATION
  Report Type: Spontaneous
  Country: JP (occurrence: JP)
  Receive Date: 20150422
  Receipt Date: 20150601
  Transmission Date: 20150821
  Serious: Yes (Hospitalization)
  Sender: FDA-Public Use
  Company Number: PHHY2015JP044382

PATIENT
  Age: 65 Year
  Sex: Male

DRUGS (3)
  1. PRAMIPEXOLE [Suspect]
     Active Substance: PRAMIPEXOLE
     Indication: PARKINSON^S DISEASE
     Dosage: 1.5 MG, UNK
     Route: 065
  2. LEVODOPA+BENSERAZIDE (NGX) [Suspect]
     Active Substance: BENSERAZIDE\LEVODOPA
     Indication: PARKINSON^S DISEASE
     Dosage: 300 MG, UNK
     Route: 065
  3. PARLODEL [Suspect]
     Active Substance: BROMOCRIPTINE MESYLATE
     Indication: PARKINSON^S DISEASE
     Dosage: 50 MG, QD
     Route: 048

REACTIONS (15)
  - Parkinson^s disease [Recovering/Resolving]
  - Muscle rigidity [Recovering/Resolving]
  - Suicide attempt [Unknown]
  - Delusion [Recovering/Resolving]
  - Catatonia [Recovering/Resolving]
  - Dropped head syndrome [Recovering/Resolving]
  - Depressive symptom [Unknown]
  - Akinesia [Recovering/Resolving]
  - Stupor [Recovering/Resolving]
  - Mutism [Recovering/Resolving]
  - Immobile [Recovering/Resolving]
  - Psychotic disorder [Recovering/Resolving]
  - Nightmare [Recovering/Resolving]
  - Dystonia [Recovering/Resolving]
  - Hallucination [Recovering/Resolving]
